FAERS Safety Report 19325466 (Version 7)
Quarter: 2022Q3

REPORT INFORMATION
  Report Type: Report from Study
  Country: KR (occurrence: KR)
  Receive Date: 20210528
  Receipt Date: 20220905
  Transmission Date: 20221027
  Serious: Yes (Hospitalization)
  Sender: FDA-Public Use
  Company Number: NVSC2021KR110128

PATIENT
  Age: 57 Year
  Sex: Male
  Weight: 64.5 kg

DRUGS (36)
  1. CANAKINUMAB [Suspect]
     Active Substance: CANAKINUMAB
     Indication: Non-small cell lung cancer
     Dosage: UNK
     Route: 058
     Dates: start: 20191010, end: 20210513
  2. PEMBROLIZUMAB [Suspect]
     Active Substance: PEMBROLIZUMAB
     Indication: Non-small cell lung cancer
     Dosage: 200 MG
     Route: 042
     Dates: start: 20191010, end: 20210513
  3. PEMETREXED DISODIUM [Suspect]
     Active Substance: PEMETREXED DISODIUM
     Indication: Non-small cell lung cancer
     Dosage: 835 MG
     Route: 042
     Dates: start: 20191010, end: 20210513
  4. LEVOTHYROXINE SODIUM [Concomitant]
     Active Substance: LEVOTHYROXINE SODIUM
     Indication: Hypothyroidism
     Dosage: UNK
     Route: 065
     Dates: start: 20200928
  5. FOLCID [Concomitant]
     Indication: Chemotherapy side effect prophylaxis
     Dosage: UNK
     Route: 065
     Dates: start: 20191010
  6. DIABEX [Concomitant]
     Active Substance: METFORMIN HYDROCHLORIDE
     Indication: Diabetes mellitus
     Dosage: UNK
     Route: 065
     Dates: start: 20201106, end: 20210513
  7. DIABEX [Concomitant]
     Active Substance: METFORMIN HYDROCHLORIDE
     Dosage: UNK
     Route: 065
     Dates: start: 20210520
  8. CAMOSTAT MESYLATE [Concomitant]
     Active Substance: CAMOSTAT MESYLATE
     Indication: Amylase increased
     Dosage: UNK
     Route: 065
     Dates: start: 20201110
  9. SULFAMETHOXAZOLE\TRIMETHOPRIM [Concomitant]
     Active Substance: SULFAMETHOXAZOLE\TRIMETHOPRIM
     Indication: Prophylaxis
     Dosage: UNK
     Route: 065
     Dates: start: 20210316
  10. PREDNISOLONE [Concomitant]
     Active Substance: PREDNISOLONE
     Indication: Colitis
     Dosage: UNK
     Route: 065
     Dates: start: 20210320, end: 20210324
  11. PREDNISOLONE [Concomitant]
     Active Substance: PREDNISOLONE
     Dosage: UNK
     Route: 065
     Dates: start: 20210325, end: 20210331
  12. PREDNISOLONE [Concomitant]
     Active Substance: PREDNISOLONE
     Dosage: UNK
     Route: 065
     Dates: start: 20210401, end: 20210414
  13. PREDNISOLONE [Concomitant]
     Active Substance: PREDNISOLONE
     Dosage: UNK
     Route: 065
     Dates: start: 20210415, end: 20210421
  14. PREDNISOLONE [Concomitant]
     Active Substance: PREDNISOLONE
     Dosage: UNK
     Route: 065
     Dates: start: 20210422, end: 20210428
  15. PREDNISOLONE [Concomitant]
     Active Substance: PREDNISOLONE
     Dosage: UNK
     Route: 065
     Dates: start: 20210429, end: 20210505
  16. URSODIOL [Concomitant]
     Active Substance: URSODIOL
     Indication: Aspartate aminotransferase increased
     Dosage: UNK
     Route: 065
     Dates: start: 20200213
  17. URSODIOL [Concomitant]
     Active Substance: URSODIOL
     Indication: Gamma-glutamyltransferase increased
  18. FOTAGEL [Concomitant]
     Indication: Colitis
     Dosage: UNK
     Route: 065
     Dates: start: 20210323
  19. GASTER [Concomitant]
     Active Substance: FAMOTIDINE
     Indication: Gastritis prophylaxis
     Dosage: UNK
     Route: 065
     Dates: start: 20210514, end: 20210527
  20. KABITWIN PERI [Concomitant]
     Indication: Nutritional supplementation
     Dosage: UNK
     Route: 065
     Dates: start: 20210515, end: 20210521
  21. VITAMINS [Concomitant]
     Active Substance: VITAMINS
     Indication: Nutritional supplementation
     Dosage: UNK
     Route: 065
     Dates: start: 20210515, end: 20210521
  22. FURTMAN [Concomitant]
     Indication: Nutritional supplementation
     Dosage: UNK
     Route: 065
     Dates: start: 20210515, end: 20210521
  23. HUMULIN R [Concomitant]
     Active Substance: INSULIN HUMAN
     Indication: Diabetes mellitus
     Dosage: UNK
     Route: 065
     Dates: start: 20210515, end: 20210521
  24. GODEX [Concomitant]
     Indication: Gamma-glutamyltransferase increased
     Dosage: UNK
     Route: 065
     Dates: start: 20200213
  25. GODEX [Concomitant]
     Indication: Aspartate aminotransferase increased
  26. HUMALOG [Concomitant]
     Active Substance: INSULIN LISPRO
     Indication: Diabetes mellitus
     Dosage: UNK
     Route: 065
     Dates: start: 20210520, end: 20210527
  27. LINAGLIPTIN [Concomitant]
     Active Substance: LINAGLIPTIN
     Indication: Diabetes mellitus
     Dosage: 5 MG
     Route: 065
     Dates: start: 20210521, end: 20210521
  28. MINOCIN [Concomitant]
     Active Substance: MINOCYCLINE HYDROCHLORIDE
     Indication: Rash
     Dosage: UNK
     Route: 065
     Dates: start: 20200326
  29. SODIUM BICARBONATE [Concomitant]
     Active Substance: SODIUM BICARBONATE
     Indication: Prophylaxis
     Dosage: UNK
     Route: 065
     Dates: start: 20210517
  30. TANTUM [Concomitant]
     Active Substance: BENZYDAMINE HYDROCHLORIDE
     Indication: Prophylaxis
     Dosage: UNK
     Route: 065
     Dates: start: 20210517
  31. AKYNZEO [Concomitant]
     Indication: Premedication
     Dosage: UNK
     Route: 065
     Dates: start: 20210517, end: 20210517
  32. BEPOTAN [Concomitant]
     Indication: Pruritus
     Dosage: UNK
     Route: 065
     Dates: start: 20200507
  33. XYZAL [Concomitant]
     Active Substance: LEVOCETIRIZINE DIHYDROCHLORIDE
     Indication: Rash
     Dosage: UNK
     Route: 065
     Dates: start: 20200507
  34. LAFUTIDINE [Concomitant]
     Active Substance: LAFUTIDINE
     Indication: Prophylaxis
     Dosage: UNK
     Route: 065
     Dates: start: 20200507, end: 20210513
  35. REBAMIPIDE [Concomitant]
     Active Substance: REBAMIPIDE
     Indication: Prophylaxis
     Dosage: UNK
     Route: 065
     Dates: start: 20200507
  36. MOTILIDONE [Concomitant]
     Indication: Prophylaxis
     Dosage: UNK
     Route: 065
     Dates: start: 20200507

REACTIONS (2)
  - Pancreatitis [Not Recovered/Not Resolved]
  - Colitis [Not Recovered/Not Resolved]

NARRATIVE: CASE EVENT DATE: 20210513
